FAERS Safety Report 21131768 (Version 1)
Quarter: 2022Q3

REPORT INFORMATION
  Report Type: Spontaneous
  Country: GB (occurrence: GB)
  Receive Date: 20220726
  Receipt Date: 20220726
  Transmission Date: 20221027
  Serious: Yes (Hospitalization, Other)
  Sender: FDA-Public Use
  Company Number: GB-MLMSERVICE-20220705-3654426-2

PATIENT
  Age: 41 Year
  Sex: Male

DRUGS (2)
  1. BUPRENORPHINE [Suspect]
     Active Substance: BUPRENORPHINE
     Indication: Product used for unknown indication
  2. ISOTONITAZENE [Suspect]
     Active Substance: ISOTONITAZENE

REACTIONS (4)
  - Respiratory arrest [Recovered/Resolved]
  - Syncope [Recovered/Resolved]
  - Miosis [Recovered/Resolved]
  - Toxicity to various agents [Recovered/Resolved]
